FAERS Safety Report 4384221-2 (Version None)
Quarter: 2004Q2

REPORT INFORMATION
  Report Type: 
  Country: None (occurrence: None)
  Receive Date: 20040614
  Receipt Date: 20040322
  Transmission Date: 20050107
  Serious: Yes (Other)
  Sender: FDA-Public Use
  Company Number: 2004194509US

PATIENT
  Age: 67 Year
  Sex: Female

DRUGS (13)
  1. ZYVOX [Suspect]
     Indication: STAPHYLOCOCCAL INFECTION
     Dosage: 600 MG, BID, IV
     Route: 042
     Dates: start: 20030402, end: 20030414
  2. ASPIRIN [Concomitant]
  3. COUMADIN (WARFARIN SODIUIM) [Concomitant]
  4. DEPAKOTE (VALPROATE SODIUIM) [Concomitant]
  5. SYNTHROID [Concomitant]
  6. VITAMIN B-12 [Concomitant]
  7. RYTHMOL [Concomitant]
  8. K-LYTE (CYCLAMIC ACID, POTASSIUM BICARBONATE) [Concomitant]
  9. XALATAN [Concomitant]
  10. ZYPREXA [Concomitant]
  11. NIFEREX (POLYSACCHARIDE-IRON COMPLEX) [Concomitant]
  12. PAXIL [Concomitant]
  13. LORTAB [Concomitant]

REACTIONS (1)
  - THROMBOCYTOPENIA [None]
